FAERS Safety Report 4874683-6 (Version None)
Quarter: 2006Q1

REPORT INFORMATION
  Report Type: 
  Country: None (occurrence: None)
  Receive Date: 20060106
  Receipt Date: 20051005
  Transmission Date: 20060701
  Serious: Yes (Hospitalization)
  Sender: FDA-Public Use
  Company Number: US-MERCK-0510USA05204

PATIENT
  Age: 59 Year
  Sex: Male
  Weight: 111 kg

DRUGS (9)
  1. VIOXX [Suspect]
     Indication: ARTHRALGIA
     Route: 048
     Dates: start: 20001013, end: 20040101
  2. ALTACE [Concomitant]
     Route: 048
  3. RANITIDINE [Concomitant]
     Route: 065
  4. LIPITOR [Concomitant]
     Route: 048
  5. TOPROL-XL [Concomitant]
     Route: 048
  6. ISOSORBIDE [Concomitant]
     Route: 048
  7. GLUCOVANCE [Concomitant]
     Route: 065
  8. NEXIUM [Concomitant]
     Route: 048
  9. ASPIRIN [Concomitant]
     Route: 065

REACTIONS (3)
  - ACUTE MYOCARDIAL INFARCTION [None]
  - DEPRESSION [None]
  - PROSTATE CANCER [None]
